FAERS Safety Report 25760891 (Version 1)
Quarter: 2025Q3

REPORT INFORMATION
  Report Type: Other
  Country: BR (occurrence: BR)
  Receive Date: 20250904
  Receipt Date: 20250904
  Transmission Date: 20251021
  Serious: Yes (Other)
  Sender: HEALTHCARE PHARMACEUTICALS
  Company Number: BR-Healthcare Pharmaceuticals Ltd.-2183813

PATIENT
  Age: 67 Year
  Sex: Female

DRUGS (4)
  1. ATENOLOL [Suspect]
     Active Substance: ATENOLOL
     Indication: Hypertension
  2. LOSARTAN [Concomitant]
     Active Substance: LOSARTAN
  3. DICLOFENAC SODIUM [Concomitant]
     Active Substance: DICLOFENAC SODIUM
  4. LEVOTHYROXINE [Concomitant]
     Active Substance: LEVOTHYROXINE

REACTIONS (1)
  - Generalised bullous fixed drug eruption [Recovered/Resolved]
